FAERS Safety Report 4370774-7 (Version None)
Quarter: 2004Q2

REPORT INFORMATION
  Report Type: 
  Country: None (occurrence: None)
  Receive Date: 20040527
  Receipt Date: 20040506
  Transmission Date: 20050107
  Serious: Yes (Other)
  Sender: FDA-Public Use
  Company Number: JP_040503108

PATIENT
  Age: 1 Day

DRUGS (1)
  1. HUMALOG [Suspect]
     Dates: start: 20030701

REACTIONS (4)
  - DRUG EXPOSURE DURING PREGNANCY [None]
  - HYPOGLYCAEMIA NEONATAL [None]
  - JAUNDICE NEONATAL [None]
  - NEONATAL ASPHYXIA [None]
